FAERS Safety Report 5844078-7 (Version None)
Quarter: 2008Q3

REPORT INFORMATION
  Report Type: 
  Country: None (occurrence: None)
  Receive Date: 20080808
  Receipt Date: 20060801
  Transmission Date: 20090109
  Serious: Yes (Hospitalization)
  Sender: FDA-Public Use
  Company Number: 2006-00686FE

PATIENT
  Age: 15 Year
  Sex: Female

DRUGS (2)
  1. ZOMACTON (ZOMACTON) (SOMATROPIN) [Suspect]
     Indication: BLOOD GROWTH HORMONE DECREASED
     Dosage: 2.4 MG
     Route: 058
     Dates: start: 20040901, end: 20060701
  2. ESTROGENIC SUBSTANCE [Concomitant]

REACTIONS (2)
  - EPIPHYSIOLYSIS [None]
  - PAIN IN EXTREMITY [None]
